FAERS Safety Report 8313334-5 (Version None)
Quarter: 2012Q2

REPORT INFORMATION
  Report Type: 
  Country: None (occurrence: None)
  Receive Date: 20120426
  Receipt Date: 20120414
  Transmission Date: 20120825
  Serious: Yes (Other)
  Sender: FDA-Public Use
  Company Number: PHHY2012MX032513

PATIENT
  Sex: Male

DRUGS (4)
  1. TEGRETOL [Suspect]
     Dosage: 2 G/100 ML, FOUR TIMES A DAY
  2. INSULIN [Concomitant]
     Dosage: UNK
  3. LEVOMEPROMAZINE [Concomitant]
     Dosage: QD
  4. TEGRETOL [Suspect]
     Dosage: 2 G/100 ML, TWICE A DAY

REACTIONS (1)
  - CONVULSION [None]
